FAERS Safety Report 8167313-1 (Version None)
Quarter: 2012Q1

REPORT INFORMATION
  Report Type: 
  Country: None (occurrence: None)
  Receive Date: 20120227
  Receipt Date: 20120222
  Transmission Date: 20120608
  Serious: Yes (Other)
  Sender: FDA-Public Use
  Company Number: US-PFIZER INC-2012047364

PATIENT
  Sex: Female

DRUGS (1)
  1. LYRICA [Suspect]
     Indication: NEURALGIA
     Dosage: 600 MG

REACTIONS (7)
  - NEURALGIA [None]
  - SWELLING [None]
  - VOMITING [None]
  - CYSTITIS [None]
  - LOCAL SWELLING [None]
  - NERVE INJURY [None]
  - JOINT SWELLING [None]
